FAERS Safety Report 5645667-5 (Version None)
Quarter: 2008Q1

REPORT INFORMATION
  Report Type: 
  Country: None (occurrence: None)
  Receive Date: 20080229
  Receipt Date: 20080219
  Transmission Date: 20080703
  Serious: Yes (Other)
  Sender: FDA-Public Use
  Company Number: US-PFIZER INC-2007042928

PATIENT
  Sex: Male
  Weight: 104.3 kg

DRUGS (1)
  1. VIAGRA [Suspect]
     Indication: ERECTILE DYSFUNCTION
     Route: 048

REACTIONS (6)
  - BLINDNESS [None]
  - CATARACT [None]
  - OPTIC ISCHAEMIC NEUROPATHY [None]
  - RETINAL VEIN OCCLUSION [None]
  - VISION BLURRED [None]
  - VISUAL FIELD DEFECT [None]
